FAERS Safety Report 21612633 (Version 1)
Quarter: 2022Q4

REPORT INFORMATION
  Report Type: Spontaneous
  Country: IT (occurrence: IT)
  Receive Date: 20221118
  Receipt Date: 20221118
  Transmission Date: 20230113
  Serious: Yes (Other)
  Sender: FDA-Public Use
  Company Number: None

PATIENT
  Sex: Male

DRUGS (6)
  1. INFLIXIMAB [Suspect]
     Active Substance: INFLIXIMAB
     Indication: Ankylosing spondylitis
     Dosage: UNKNOWN, SOLUTION FOR INJECTION/INFUSION
     Route: 042
     Dates: start: 20221018, end: 20221018
  2. CHOLECALCIFEROL [Concomitant]
     Active Substance: CHOLECALCIFEROL
     Indication: Product used for unknown indication
     Route: 065
  3. METHOTREXATE [Concomitant]
     Active Substance: METHOTREXATE
     Indication: Product used for unknown indication
     Dosage: UNKNOWN, 2.5 MG; 3 CP AT LUNCH PLUS 3 CP AT DINNER ON MONDAY
     Route: 065
  4. FOLINA [Concomitant]
     Indication: Product used for unknown indication
     Dosage: 5 MG; 1 CP TWO DAYS AFTER MTX ADMINISTRATION (ON WEDNESDAY)
     Route: 065
  5. LANSOPRAZOLE [Concomitant]
     Active Substance: LANSOPRAZOLE
     Indication: Product used for unknown indication
     Route: 065
  6. PREDNISONE [Concomitant]
     Active Substance: PREDNISONE
     Indication: Product used for unknown indication
     Dosage: 25 MG; EVERY DAY EXCEPT SUNDAY
     Route: 065

REACTIONS (6)
  - Flushing [Recovered/Resolved]
  - Sensation of foreign body [Recovered/Resolved]
  - Choking sensation [Recovered/Resolved]
  - Abdominal pain [Recovered/Resolved]
  - Vomiting [Recovered/Resolved]
  - Tachycardia [Recovered/Resolved]

NARRATIVE: CASE EVENT DATE: 20221018
